FAERS Safety Report 7768981-6 (Version None)
Quarter: 2011Q3

REPORT INFORMATION
  Report Type: 
  Country: None (occurrence: None)
  Receive Date: 20110922
  Receipt Date: 20110303
  Transmission Date: 20111222
  Serious: No
  Sender: FDA-Public Use
  Company Number: US-ASTRAZENECA-2011SE11759

PATIENT
  Age: 44 Year
  Sex: Female

DRUGS (6)
  1. TOPAMAX [Concomitant]
  2. KLONOPIN [Concomitant]
  3. SEROQUEL XR [Suspect]
     Indication: MAJOR DEPRESSION
     Route: 048
     Dates: start: 20100101, end: 20110228
  4. SEROQUEL XR [Suspect]
     Indication: SLEEP DISORDER
     Route: 048
     Dates: start: 20100101, end: 20110228
  5. LEXAPRO [Concomitant]
  6. SEROQUEL XR [Suspect]
     Indication: DEPRESSION
     Route: 048
     Dates: start: 20100101, end: 20110228

REACTIONS (9)
  - NAUSEA [None]
  - INSOMNIA [None]
  - TREMOR [None]
  - DRUG DOSE OMISSION [None]
  - HEADACHE [None]
  - DIARRHOEA [None]
  - FEELING JITTERY [None]
  - VOMITING [None]
  - IMPAIRED WORK ABILITY [None]
